FAERS Safety Report 13729544 (Version 2)
Quarter: 2017Q3

REPORT INFORMATION
  Report Type: Spontaneous
  Country: DE (occurrence: DE)
  Receive Date: 20170707
  Receipt Date: 20170905
  Transmission Date: 20171127
  Serious: Yes (Hospitalization)
  Sender: FDA-Public Use
  Company Number: DE-SA-2017SA117152

PATIENT
  Age: 67 Year
  Sex: Female
  Weight: 80 kg

DRUGS (1)
  1. IMMUCYST [Suspect]
     Active Substance: BACILLUS CALMETTE-GUERIN SUBSTRAIN CONNAUGHT LIVE ANTIGEN
     Indication: BLADDER CANCER RECURRENT
     Dosage: DRY SUBSTANCE (POWEDER) AND SOLVENT FOR PREPARATION OF SUSPENSION FOR INSTILLATION
     Route: 043
     Dates: end: 2007

REACTIONS (5)
  - Granulomatous lymphadenitis [Recovering/Resolving]
  - Nipple disorder [Unknown]
  - Lymph node tuberculosis [Recovering/Resolving]
  - Metastases to lymph nodes [Unknown]
  - Breast cancer [Unknown]

NARRATIVE: CASE EVENT DATE: 2017
